FAERS Safety Report 4375886-X (Version None)
Quarter: 2004Q2

REPORT INFORMATION
  Report Type: 
  Country: None (occurrence: None)
  Receive Date: 20040607
  Receipt Date: 20040526
  Transmission Date: 20050107
  Serious: Yes (Disabling)
  Sender: FDA-Public Use
  Company Number: GB-JNJFOC-20040506189

PATIENT
  Age: 48 Year
  Sex: Female

DRUGS (11)
  1. REMICADE [Suspect]
     Indication: RHEUMATOID ARTHRITIS
     Dosage: 240 MG, INTRAVENOUS : 250 MG, INTRAVENOUS : 275 MG, INTRAVENOUS : 250 MG, INTRAVENOUS
     Route: 042
     Dates: start: 20020822
  2. PREDNISOLONE [Concomitant]
  3. LANSOPRAZOLE [Concomitant]
  4. TRAMADOL HCL [Concomitant]
  5. HRT (ANDROGENS AND FEMALE SEX HORMONES IN COMB) [Concomitant]
  6. PAROXETINE HCL [Concomitant]
  7. ROFECOXIB [Concomitant]
  8. ETIDRONATE (ETIDRONATE DISODIUM) [Concomitant]
  9. METHOTREXATE [Concomitant]
  10. AMTRIPTYLINE [Concomitant]
  11. CALCEOS (LEKOVIT CA) [Concomitant]

REACTIONS (2)
  - DIFFICULTY IN WALKING [None]
  - SCIATICA [None]
